FAERS Safety Report 6966073-7 (Version None)
Quarter: 2010Q3

REPORT INFORMATION
  Report Type: 
  Country: None (occurrence: None)
  Receive Date: 20100903
  Receipt Date: 20100827
  Transmission Date: 20110219
  Serious: Yes (Hospitalization)
  Sender: FDA-Public Use
  Company Number: PT-GILEAD-2010-0031185

PATIENT
  Age: 14 Year
  Sex: Female

DRUGS (6)
  1. TRUVADA [Suspect]
     Indication: HIV INFECTION
     Dates: start: 20091001
  2. TRUVADA [Suspect]
     Dates: start: 20100101
  3. KALETRA [Concomitant]
     Indication: HIV INFECTION
     Dates: start: 20091001
  4. KALETRA [Concomitant]
     Dates: start: 20100101
  5. RALTEGRAVIR [Concomitant]
     Indication: HIV INFECTION
     Dates: start: 20100101
  6. EFAVIRENZ [Concomitant]
     Indication: HIV INFECTION
     Dates: start: 20091001, end: 20091101

REACTIONS (2)
  - PAIN IN EXTREMITY [None]
  - PERIPHERAL ISCHAEMIA [None]
